FAERS Safety Report 9284460 (Version 1)
Quarter: 2013Q2

REPORT INFORMATION
  Report Type: Spontaneous
  Country: US (occurrence: US)
  Receive Date: 20130510
  Receipt Date: 20130510
  Transmission Date: 20140414
  Serious: No
  Sender: FDA-Public Use
  Company Number: US-ASTRAZENECA-2013SE29479

PATIENT
  Age: 65 Year
  Sex: Female
  Weight: 54.4 kg

DRUGS (4)
  1. SYMBICORT PMDI [Suspect]
     Indication: BRONCHIECTASIS
     Dosage: TWO PUFFS BID
     Route: 055
  2. CENTRUM SILVER WOMENS 50 PLUS (PFIZER) [Suspect]
     Indication: MEDICAL DIET
     Route: 048
     Dates: start: 2013
  3. PROAIR HFA [Suspect]
     Indication: BRONCHIECTASIS
     Dosage: AS NEEDED
     Route: 065
  4. SPIRIVA (PFIZER) [Suspect]
     Indication: BRONCHIECTASIS
     Dosage: TWO PUFFS DAILY
     Route: 065

REACTIONS (4)
  - Dry mouth [Unknown]
  - Dry throat [Unknown]
  - Choking [Unknown]
  - Off label use [Unknown]
